FAERS Safety Report 8250952-7 (Version None)
Quarter: 2012Q2

REPORT INFORMATION
  Report Type: 
  Country: None (occurrence: None)
  Receive Date: 20120402
  Receipt Date: 20120323
  Transmission Date: 20120825
  Serious: Yes (Other)
  Sender: FDA-Public Use
  Company Number: JP-ASTRAZENECA-2012SE20491

PATIENT
  Age: 63 Year
  Sex: Male

DRUGS (1)
  1. DIPRIVAN [Suspect]
     Indication: SEDATION
     Route: 042

REACTIONS (1)
  - NEUROLEPTIC MALIGNANT SYNDROME [None]
